FAERS Safety Report 6968299-5 (Version None)
Quarter: 2010Q3

REPORT INFORMATION
  Report Type: 
  Country: None (occurrence: None)
  Receive Date: 20100907
  Receipt Date: 20100827
  Transmission Date: 20110219
  Serious: Yes (Hospitalization)
  Sender: FDA-Public Use
  Company Number: JP-JNJFOC-20100801715

PATIENT
  Sex: Male

DRUGS (3)
  1. LEVOFLOXACIN [Suspect]
     Indication: CALCULUS URINARY
     Route: 048
  2. LEVOFLOXACIN [Suspect]
     Indication: INFECTION PROPHYLAXIS
     Route: 048
  3. PANSPORIN [Suspect]
     Indication: CALCULUS URETERIC
     Route: 041

REACTIONS (2)
  - DRUG ERUPTION [None]
  - MOUTH HAEMORRHAGE [None]
